FAERS Safety Report 12468980 (Version 1)
Quarter: 2016Q2

REPORT INFORMATION
  Report Type: Report from Study
  Country: GB (occurrence: GB)
  Receive Date: 20160615
  Receipt Date: 20160615
  Transmission Date: 20160815
  Serious: Yes (Hospitalization)
  Sender: FDA-Public Use
  Company Number: GB-ALEXION PHARMACEUTICALS INC-A201604354

PATIENT
  Sex: Male

DRUGS (1)
  1. SOLIRIS [Suspect]
     Active Substance: ECULIZUMAB
     Indication: PRODUCT USED FOR UNKNOWN INDICATION
     Dosage: 1200 MG, Q2W AS DIRECTED
     Route: 042
     Dates: start: 20160201

REACTIONS (3)
  - Pyrexia [Unknown]
  - Diarrhoea [Unknown]
  - Chills [Unknown]
